FAERS Safety Report 25356676 (Version 1)
Quarter: 2025Q2

REPORT INFORMATION
  Report Type: Spontaneous
  Country: US (occurrence: US)
  Receive Date: 20250526
  Receipt Date: 20250526
  Transmission Date: 20250716
  Serious: No
  Sender: ROCHE
  Company Number: US-ROCHE-10000290236

PATIENT
  Sex: Male

DRUGS (4)
  1. ACTEMRA ACTPEN [Suspect]
     Active Substance: TOCILIZUMAB
     Indication: Giant cell arteritis
     Route: 058
  2. HYDROXYCHLOROQUINE [Concomitant]
     Active Substance: HYDROXYCHLOROQUINE
  3. PANTOPRAZOLE SOL 40MG [Concomitant]
  4. PREDNISOLONE TAB 5MG [Concomitant]

REACTIONS (1)
  - Diarrhoea [Not Recovered/Not Resolved]
